FAERS Safety Report 13161785 (Version 2)
Quarter: 2018Q4

REPORT INFORMATION
  Report Type: Report from Study
  Country: US (occurrence: US)
  Receive Date: 20170130
  Receipt Date: 20181113
  Transmission Date: 20190204
  Serious: Yes (Hospitalization, Other)
  Sender: FDA-Public Use
  Company Number: US-GILEAD-2017-0255042

PATIENT
  Age: 72 Year
  Sex: Female

DRUGS (2)
  1. AMBRISENTAN [Suspect]
     Active Substance: AMBRISENTAN
     Indication: PRODUCT USED FOR UNKNOWN INDICATION
     Dosage: 10 MG, QD
     Route: 065
     Dates: start: 20111010
  2. TYVASO [Concomitant]
     Active Substance: TREPROSTINIL

REACTIONS (5)
  - Pneumonia respiratory syncytial viral [Unknown]
  - Pneumonia [Unknown]
  - Bronchitis [Unknown]
  - Respiratory syncytial virus infection [Unknown]
  - Dyspnoea [Unknown]
